FAERS Safety Report 8059491-X (Version None)
Quarter: 2012Q1

REPORT INFORMATION
  Report Type: 
  Country: None (occurrence: None)
  Receive Date: 20120120
  Receipt Date: 20120111
  Transmission Date: 20120608
  Serious: Yes (Other)
  Sender: FDA-Public Use
  Company Number: MX-SANOFI-AVENTIS-2012SA002262

PATIENT
  Age: 67 Year
  Sex: Male
  Weight: 86 kg

DRUGS (2)
  1. PLAVIX [Suspect]
     Route: 048
     Dates: start: 19990101
  2. PRINIVIL [Concomitant]
     Route: 048
     Dates: start: 19990101, end: 20100101

REACTIONS (3)
  - LIPOMA [None]
  - TYPE 2 DIABETES MELLITUS [None]
  - DYSLIPIDAEMIA [None]
